FAERS Safety Report 15627792 (Version 2)
Quarter: 2020Q2

REPORT INFORMATION
  Report Type: Spontaneous
  Country: US (occurrence: US)
  Receive Date: 20181116
  Receipt Date: 20200511
  Transmission Date: 20200713
  Serious: Yes (Other)
  Sender: FDA-Public Use
  Company Number: US-ELI_LILLY_AND_COMPANY-US201811003262

PATIENT
  Sex: Female

DRUGS (3)
  1. HUMALOG [Suspect]
     Active Substance: INSULIN LISPRO
     Indication: TYPE 2 DIABETES MELLITUS
     Dosage: 0.5-1 U, DAILY AT MEAL
     Route: 058
     Dates: start: 1970
  2. LANTUS [Concomitant]
     Active Substance: INSULIN GLARGINE
     Indication: TYPE 2 DIABETES MELLITUS
     Dosage: 7 U, EACH MORNING
     Dates: start: 1980
  3. HUMALOG [Suspect]
     Active Substance: INSULIN LISPRO
     Dosage: 0.5-1 U, DAILY AT MEAL
     Route: 058

REACTIONS (5)
  - Blood glucose increased [Recovered/Resolved]
  - Renal disorder [Not Recovered/Not Resolved]
  - Vitreous haemorrhage [Unknown]
  - Dry eye [Not Recovered/Not Resolved]
  - Blood glucose decreased [Recovered/Resolved]

NARRATIVE: CASE EVENT DATE: 2005
